FAERS Safety Report 4552886-8 (Version None)
Quarter: 2005Q1

REPORT INFORMATION
  Report Type: 
  Country: None (occurrence: None)
  Receive Date: 20050112
  Receipt Date: 20050112
  Transmission Date: 20050727
  Serious: Yes (Hospitalization)
  Sender: FDA-Public Use
  Company Number: None

PATIENT
  Age: 4 Year
  Sex: Female

DRUGS (3)
  1. MYSOLINE [Suspect]
     Dosage: 200    1 P.O. AM 3 PO PM
     Route: 048
  2. TEGRETOL [Suspect]
     Dosage: TEGRETOL XR 200MG PO BID
     Route: 048
  3. TEGRETOL [Suspect]
     Dosage: 400MG XR 1 PO BID
     Route: 048

REACTIONS (3)
  - CONDITION AGGRAVATED [None]
  - CONVULSION [None]
  - PHARMACEUTICAL PRODUCT COMPLAINT [None]
